FAERS Safety Report 23635602 (Version 1)
Quarter: 2024Q1

REPORT INFORMATION
  Report Type: Spontaneous
  Country: US (occurrence: US)
  Receive Date: 20240315
  Receipt Date: 20240315
  Transmission Date: 20240409
  Serious: Yes (Other)
  Sender: FDA-Public Use
  Company Number: US-002147023-NVSC2024US049356

PATIENT
  Sex: Female

DRUGS (1)
  1. KESIMPTA [Suspect]
     Active Substance: OFATUMUMAB
     Indication: Relapsing-remitting multiple sclerosis
     Dosage: UNK
     Route: 065

REACTIONS (10)
  - Atypical pneumonia [Unknown]
  - Nausea [Unknown]
  - Asthenia [Unknown]
  - Confusional state [Unknown]
  - Hypoaesthesia [Unknown]
  - Foot deformity [Unknown]
  - Musculoskeletal discomfort [Unknown]
  - Drug ineffective [Unknown]
  - Gait disturbance [Unknown]
  - Condition aggravated [Unknown]
